FAERS Safety Report 5151204-4 (Version None)
Quarter: 2006Q4

REPORT INFORMATION
  Report Type: 
  Country: None (occurrence: None)
  Receive Date: 20061115
  Receipt Date: 20061112
  Transmission Date: 20070319
  Serious: Yes (Death)
  Sender: FDA-Public Use
  Company Number: IL-NOVOPROD-258538

PATIENT
  Age: 36 Year
  Sex: Female
  Weight: 70 kg

DRUGS (5)
  1. NOVOSEVEN [Suspect]
     Indication: DISSEMINATED INTRAVASCULAR COAGULATION
     Dosage: 7.2 MG, QD
     Dates: start: 20061110
  2. FRESH FROZEN PLASMA [Concomitant]
     Dosage: 2 UNK, UNK
     Dates: start: 20061108
  3. BLOOD CELLS, PACKED HUMAN [Concomitant]
     Dosage: 16 UNK, UNK
     Dates: start: 20061108
  4. PLATELETS [Concomitant]
     Dosage: 11 UNK, UNK
     Dates: start: 20061108
  5. CRYOPRECIPITATES [Concomitant]
     Dosage: 48 UNK, UNK
     Dates: start: 20061108

REACTIONS (5)
  - ANURIA [None]
  - HAEMORRHAGE [None]
  - MULTI-ORGAN FAILURE [None]
  - SPLENIC RUPTURE [None]
  - THERAPEUTIC RESPONSE DECREASED [None]
